FAERS Safety Report 12783420 (Version 1)
Quarter: 2016Q3

REPORT INFORMATION
  Report Type: Spontaneous
  Country: US (occurrence: US)
  Receive Date: 20160926
  Receipt Date: 20160926
  Transmission Date: 20161109
  Serious: Yes (Death)
  Sender: FDA-Public Use
  Company Number: None

PATIENT
  Age: 90 Year
  Sex: Female

DRUGS (1)
  1. REVLIMID [Suspect]
     Active Substance: LENALIDOMIDE
     Indication: PLASMA CELL MYELOMA
     Route: 048
     Dates: start: 20100512, end: 20121229

REACTIONS (12)
  - Plasma cell myeloma [None]
  - Nausea [None]
  - Renal impairment [None]
  - Platelet count decreased [None]
  - Respiratory failure [None]
  - Chest pain [None]
  - Dyspnoea [None]
  - Dehydration [None]
  - Vomiting [None]
  - Mental status changes [None]
  - Increased upper airway secretion [None]
  - Malnutrition [None]

NARRATIVE: CASE EVENT DATE: 20130108
